FAERS Safety Report 5118633-6 (Version None)
Quarter: 2006Q4

REPORT INFORMATION
  Report Type: 
  Country: None (occurrence: None)
  Receive Date: 20061002
  Receipt Date: 20060925
  Transmission Date: 20070319
  Serious: Yes (Hospitalization)
  Sender: FDA-Public Use
  Company Number: FR-GLAXOSMITHKLINE-B0439618A

PATIENT
  Age: 72 Year
  Sex: Male

DRUGS (8)
  1. ZELITREX [Suspect]
     Dosage: 500MG TWICE PER DAY
     Route: 048
     Dates: start: 20060128, end: 20060524
  2. CORTANCYL [Suspect]
     Indication: AGRANULOCYTOSIS
     Route: 048
     Dates: start: 20060128, end: 20060504
  3. OMEPRAZOLE [Suspect]
     Route: 048
     Dates: start: 20060128, end: 20060524
  4. VFEND [Suspect]
     Dosage: 300MG TWICE PER DAY
     Route: 048
     Dates: start: 20060128, end: 20060524
  5. PENTACARINAT [Concomitant]
     Route: 055
  6. LOZOL [Concomitant]
  7. NISIS [Concomitant]
  8. ASPIRIN [Concomitant]

REACTIONS (5)
  - AREFLEXIA [None]
  - COORDINATION ABNORMAL [None]
  - PALLANAESTHESIA [None]
  - PARAESTHESIA [None]
  - PERIPHERAL SENSORY NEUROPATHY [None]
